FAERS Safety Report 7243195-7 (Version None)
Quarter: 2011Q1

REPORT INFORMATION
  Report Type: 
  Country: None (occurrence: None)
  Receive Date: 20110125
  Receipt Date: 20110110
  Transmission Date: 20110831
  Serious: Yes (Other)
  Sender: FDA-Public Use
  Company Number: BR-ROCHE-695479

PATIENT
  Sex: Male
  Weight: 71 kg

DRUGS (6)
  1. FINASTERIDE [Suspect]
     Route: 065
  2. ROACUTAN [Suspect]
     Dosage: STRENGTH: 10 AND 20 MG/ CAPSULE
     Route: 048
     Dates: end: 20091201
  3. ROACUTAN [Suspect]
     Dosage: DOSAGE INCREASED.
     Route: 048
     Dates: start: 20090701, end: 20091226
  4. ROACUTAN [Suspect]
     Indication: ACNE
     Dosage: CO-INDICATION: OILY SKIN
     Route: 048
     Dates: start: 20090801
  5. ROACUTAN [Suspect]
     Dosage: TAKEN DURING MEAL
     Route: 048
     Dates: start: 20100301, end: 20100801
  6. ROACUTAN [Suspect]
     Dosage: GRADUALLY INCREASED
     Route: 048

REACTIONS (22)
  - SKIN HYPOPIGMENTATION [None]
  - MYALGIA [None]
  - THYROID DISORDER [None]
  - CHAPPED LIPS [None]
  - DRY SKIN [None]
  - SKIN DISORDER [None]
  - PALLOR [None]
  - MUSCLE ATROPHY [None]
  - MUSCLE DISORDER [None]
  - MUSCLE SPASMS [None]
  - MUSCULAR WEAKNESS [None]
  - PHOTOSENSITIVITY REACTION [None]
  - ASPARTATE AMINOTRANSFERASE INCREASED [None]
  - DEPRESSION [None]
  - ANXIETY [None]
  - HYPERHIDROSIS [None]
  - MENTAL DISORDER [None]
  - IMPAIRED HEALING [None]
  - NEGATIVE THOUGHTS [None]
  - GASTRITIS [None]
  - DEPRESSED MOOD [None]
  - ARTHRALGIA [None]
